FAERS Safety Report 21035151 (Version 1)
Quarter: 2022Q3

REPORT INFORMATION
  Report Type: Spontaneous
  Country: GB (occurrence: GB)
  Receive Date: 20220701
  Receipt Date: 20220701
  Transmission Date: 20221027
  Serious: Yes (Other)
  Sender: FDA-Public Use
  Company Number: None

PATIENT
  Age: 43 Year
  Sex: Male
  Weight: 90 kg

DRUGS (9)
  1. ALBUTEROL [Suspect]
     Active Substance: ALBUTEROL
     Indication: Product used for unknown indication
     Dosage: 100 MICROGRAM (1-2 ACTUATION)
     Route: 065
     Dates: start: 20220606, end: 20220615
  2. CARBOCYSTEINE [Concomitant]
     Active Substance: CARBOCYSTEINE
     Dosage: UNK (1 CAPSULE)
     Route: 065
     Dates: start: 20220607
  3. MELATONIN [Concomitant]
     Active Substance: MELATONIN
     Dosage: UNK (4 TABLET)
     Route: 065
     Dates: start: 20220531
  4. CITALOPRAM [Concomitant]
     Active Substance: CITALOPRAM HYDROBROMIDE
     Dosage: UNK (1 TABLET)
     Route: 065
     Dates: start: 20220601
  5. CONCERTA [Concomitant]
     Active Substance: METHYLPHENIDATE HYDROCHLORIDE
     Dosage: UNK (1 TABLET)
     Route: 065
     Dates: start: 20220615
  6. MELATONIN [Concomitant]
     Active Substance: MELATONIN
     Dosage: UNK (4 TABLET)
     Route: 065
     Dates: start: 20220607
  7. SUMATRIPTAN [Concomitant]
     Active Substance: SUMATRIPTAN
     Dosage: UNK (1 TABLET)
     Route: 065
     Dates: start: 20220618
  8. TRELEGY ELLIPTA [Concomitant]
     Active Substance: FLUTICASONE FUROATE\UMECLIDINIUM BROMIDE\VILANTEROL TRIFENATATE
     Dosage: UNK (1 ACTUATION)
     Route: 065
     Dates: start: 20220607
  9. METHYLPHENIDATE HYDROCHLORIDE [Concomitant]
     Active Substance: METHYLPHENIDATE HYDROCHLORIDE
     Dosage: UNK (1 TABLET)
     Route: 065
     Dates: start: 20220601, end: 20220614

REACTIONS (1)
  - Dyspnoea [Recovered/Resolved]

NARRATIVE: CASE EVENT DATE: 20220619
